FAERS Safety Report 5598499-0 (Version None)
Quarter: 2008Q1

REPORT INFORMATION
  Report Type: 
  Country: None (occurrence: None)
  Receive Date: 20080122
  Receipt Date: 20070827
  Transmission Date: 20080703
  Serious: No
  Sender: FDA-Public Use
  Company Number: DE-PFIZER INC-2007062209

PATIENT
  Age: 65 Year
  Sex: Female
  Weight: 60 kg

DRUGS (1)
  1. SUTENT [Suspect]
     Indication: NON-SMALL CELL LUNG CANCER

REACTIONS (1)
  - NO ADVERSE EVENT [None]
